FAERS Safety Report 19379669 (Version 1)
Quarter: 2021Q2

REPORT INFORMATION
  Report Type: Other
  Country: DE (occurrence: DE)
  Receive Date: 20210607
  Receipt Date: 20210607
  Transmission Date: 20210717
  Serious: Yes (Other)
  Sender: FDA-Public Use
  Company Number: DE-SAPTALIS PHARMACEUTICALS,LLC-000088

PATIENT
  Sex: Female

DRUGS (12)
  1. TRIAMCINOLONE ACETONIDE. [Suspect]
     Active Substance: TRIAMCINOLONE ACETONIDE
     Indication: MULTIPLE SCLEROSIS
     Dosage: CYCLE 2, FIRST DOSE 60 MG INTRATHECAL INJECTIONS
     Route: 037
  2. TRIAMCINOLONE ACETONIDE. [Suspect]
     Active Substance: TRIAMCINOLONE ACETONIDE
     Indication: MULTIPLE SCLEROSIS
     Dosage: CYCLE 6, SECOND DOSE 60 MG INTRATHECAL INJECTIONS
     Route: 037
  3. TRIAMCINOLONE ACETONIDE. [Suspect]
     Active Substance: TRIAMCINOLONE ACETONIDE
     Indication: MULTIPLE SCLEROSIS
     Dosage: CYCLE 6, FOURTH DOSE, INTRATHECAL INJECTION
     Route: 037
  4. TRIAMCINOLONE ACETONIDE. [Suspect]
     Active Substance: TRIAMCINOLONE ACETONIDE
     Indication: MULTIPLE SCLEROSIS
     Dosage: CYCLE 6, FIRST DOSE 60 MG INTRATHECAL INJECTIONS
     Route: 037
  5. TRIAMCINOLONE ACETONIDE. [Suspect]
     Active Substance: TRIAMCINOLONE ACETONIDE
     Indication: MULTIPLE SCLEROSIS
     Dosage: CYCLE 6, THIRD DOSE 60 MG INTRATHECAL INJECTIONS
     Route: 037
  6. TRIAMCINOLONE ACETONIDE. [Suspect]
     Active Substance: TRIAMCINOLONE ACETONIDE
     Indication: MULTIPLE SCLEROSIS
     Dosage: CYCLE 3, THIRD DOSE 60 MG INTRATHECAL INJECTIONS
     Route: 037
  7. TRIAMCINOLONE ACETONIDE. [Suspect]
     Active Substance: TRIAMCINOLONE ACETONIDE
     Indication: MULTIPLE SCLEROSIS
     Dosage: CYCLE 3, SECOND DOSE, 60 MG INTRATHECAL INJECTIONS
     Route: 037
  8. TRIAMCINOLONE ACETONIDE. [Suspect]
     Active Substance: TRIAMCINOLONE ACETONIDE
     Indication: MULTIPLE SCLEROSIS
     Dosage: CYCLE 3, FIRST DOSE, 60 MG INTRATHECAL INJECTIONS
     Route: 037
  9. TRIAMCINOLONE ACETONIDE. [Suspect]
     Active Substance: TRIAMCINOLONE ACETONIDE
     Indication: MULTIPLE SCLEROSIS
     Dosage: CYCLE 2 SECOND DOSE 60 MG INTRATHECAL INJECTIONS
     Route: 037
  10. TRIAMCINOLONE ACETONIDE. [Suspect]
     Active Substance: TRIAMCINOLONE ACETONIDE
     Indication: MULTIPLE SCLEROSIS
     Dosage: CYCLE 2, FOURTH DOSE, 60 MG INTRATHECAL INJECTIONS
     Route: 037
  11. TRIAMCINOLONE ACETONIDE. [Suspect]
     Active Substance: TRIAMCINOLONE ACETONIDE
     Indication: MULTIPLE SCLEROSIS
     Dosage: CYCLE 3, FOURTH DOSE 60 MG INTRATHECAL INJECTIONS
     Route: 037
  12. TRIAMCINOLONE ACETONIDE. [Suspect]
     Active Substance: TRIAMCINOLONE ACETONIDE
     Indication: MULTIPLE SCLEROSIS
     Dosage: CYCLE 2 THIRD DOSE 60 MG INTRATHECAL INJECTIONS
     Route: 037

REACTIONS (2)
  - Off label use [Unknown]
  - Hypothalamic pituitary adrenal axis suppression [Unknown]
